FAERS Safety Report 9048965 (Version 2)
Quarter: 2013Q1

REPORT INFORMATION
  Report Type: Spontaneous
  Country: US (occurrence: None)
  Receive Date: 20130116
  Receipt Date: 20130201
  Transmission Date: 20140127
  Serious: Yes (Death)
  Sender: FDA-Public Use
  Company Number: DSA_61869_2013

PATIENT
  Age: 57 Year
  Sex: Male

DRUGS (7)
  1. DILTIAZEM HYDROCHLORIDE [Suspect]
     Indication: PRODUCT USED FOR UNKNOWN INDICATION
     Dosage: (DF ORAL)
  2. TRAMADOL HYDROCHLORIDE [Suspect]
     Dosage: (DF ORAL)
  3. DIAZEPAM [Suspect]
     Dosage: (DF ORAL)
  4. AMIODARONE HYDROCHLORIDE [Suspect]
     Dosage: (DF ORAL)
  5. CARVEDILOL [Suspect]
     Dosage: {DF}
     Route: 048
  6. LISINOPRIL [Suspect]
     Dosage: (DF)
     Route: 048
  7. COCAINE [Suspect]
     Dosage: {DF}
     Route: 048

REACTIONS (3)
  - Completed suicide [None]
  - Toxicity to various agents [None]
  - Intentional drug misuse [None]
